FAERS Safety Report 14406624 (Version 5)
Quarter: 2018Q4

REPORT INFORMATION
  Report Type: Spontaneous
  Country: US (occurrence: US)
  Receive Date: 20180118
  Receipt Date: 20181004
  Transmission Date: 20190204
  Serious: No
  Sender: FDA-Public Use
  Company Number: US-BRISTOL-MYERS SQUIBB COMPANY-BMS-2018-003180

PATIENT
  Age: 34 Year
  Sex: Male

DRUGS (2)
  1. SPRYCEL [Suspect]
     Active Substance: DASATINIB
     Indication: CHRONIC MYELOID LEUKAEMIA
     Dosage: 100 MG, QD
     Route: 048
     Dates: end: 20180108
  2. SPRYCEL [Suspect]
     Active Substance: DASATINIB
     Indication: PRODUCT USED FOR UNKNOWN INDICATION
     Dosage: 70 MG, QD
     Route: 048
     Dates: start: 20180104

REACTIONS (8)
  - Diarrhoea [Recovering/Resolving]
  - Dizziness [Unknown]
  - Muscle spasms [Unknown]
  - Nausea [Unknown]
  - Headache [Recovering/Resolving]
  - Hypoaesthesia [Unknown]
  - Discomfort [Unknown]
  - Adverse event [Unknown]

NARRATIVE: CASE EVENT DATE: 20180109
